FAERS Safety Report 14450786 (Version 1)
Quarter: 2018Q1

REPORT INFORMATION
  Report Type: Spontaneous
  Country: US (occurrence: US)
  Receive Date: 20180126
  Receipt Date: 20180126
  Transmission Date: 20180509
  Serious: Yes (Other)
  Sender: FDA-Public Use
  Company Number: None

PATIENT
  Age: 11 Year
  Sex: Male
  Weight: 40.5 kg

DRUGS (16)
  1. ATALUREN/TRANSLARNA [Concomitant]
  2. CARVEIDILOL [Concomitant]
  3. CITALOPRAM [Concomitant]
     Active Substance: CITALOPRAM HYDROBROMIDE
  4. PORTABLE WHEEL CHAIR [Concomitant]
  5. COQ10 [Concomitant]
     Active Substance: UBIDECARENONE
  6. SPIRONOLACTONE. [Concomitant]
     Active Substance: SPIRONOLACTONE
  7. MEDICAL SCOOTER [Concomitant]
  8. MEDICAL STANDER [Concomitant]
  9. FISH OIL [Concomitant]
     Active Substance: FISH OIL
  10. EMFLAZA [Suspect]
     Active Substance: DEFLAZACORT
     Indication: DUCHENNE MUSCULAR DYSTROPHY
     Dosage: ?          QUANTITY:2 TABLET(S);?
     Route: 048
     Dates: start: 20170629, end: 20180126
  11. COUGH ASSIST MACHINE [Concomitant]
  12. PROTANDIM [Concomitant]
     Active Substance: DIETARY SUPPLEMENT
  13. LISINOPRIL. [Concomitant]
     Active Substance: LISINOPRIL
  14. FERROUS SULFATE. [Concomitant]
     Active Substance: FERROUS SULFATE
  15. VITAMIN D [Concomitant]
     Active Substance: CHOLECALCIFEROL
  16. NIGHT SPLINTS [Concomitant]

REACTIONS (3)
  - Mobility decreased [None]
  - Weight increased [None]
  - Obsessive-compulsive disorder [None]

NARRATIVE: CASE EVENT DATE: 20170630
